FAERS Safety Report 12831916 (Version 2)
Quarter: 2016Q4

REPORT INFORMATION
  Report Type: Spontaneous
  Country: GB (occurrence: GB)
  Receive Date: 20161010
  Receipt Date: 20161104
  Transmission Date: 20170207
  Serious: Yes (Life-Threatening, Hospitalization, Disabling, Other)
  Sender: FDA-Public Use
  Company Number: GB-ACCORD-044695

PATIENT
  Age: 82 Year
  Sex: Female
  Weight: 74.9 kg

DRUGS (11)
  1. BOOTS PARACETAMOL [Concomitant]
  2. IRON [Concomitant]
     Active Substance: IRON
  3. DONEPEZIL/DONEPEZIL HYDROCHLORIDE [Suspect]
     Active Substance: DONEPEZIL HYDROCHLORIDE
     Indication: DEMENTIA
     Route: 048
  4. AMOXICILLIN. [Concomitant]
     Active Substance: AMOXICILLIN
  5. QUININE [Concomitant]
     Active Substance: QUININE
  6. ADCAL-D3 [Concomitant]
     Active Substance: CALCIUM CARBONATE\CHOLECALCIFEROL
  7. HYDROXOCOBALAMIN [Concomitant]
     Active Substance: HYDROXOCOBALAMIN
  8. ROSUVASTATIN/ROSUVASTATIN CALCIUM [Concomitant]
  9. ALENDRONATE SODIUM/ALENDRONIC ACID [Concomitant]
  10. AMLODIPINE [Concomitant]
     Active Substance: AMLODIPINE BESYLATE
  11. NOVOMIX [Concomitant]
     Active Substance: INSULIN ASPART

REACTIONS (3)
  - Tubulointerstitial nephritis [Recovering/Resolving]
  - Liver injury [Unknown]
  - Acute kidney injury [Recovering/Resolving]
